FAERS Safety Report 5052026-5 (Version None)
Quarter: 2006Q3

REPORT INFORMATION
  Report Type: 
  Country: None (occurrence: None)
  Receive Date: 20060711
  Receipt Date: 20060626
  Transmission Date: 20061208
  Serious: Yes (Death)
  Sender: FDA-Public Use
  Company Number: DE-2006-007813

PATIENT
  Age: 65 Year
  Sex: Male

DRUGS (4)
  1. BETASERON [Suspect]
     Indication: MULTIPLE SCLEROSIS
     Dosage: SUBCUTANEOUS
     Route: 058
     Dates: start: 20020101
  2. BEZAFIBRATE [Concomitant]
  3. VERAPAMIL [Concomitant]
  4. ATORVASTATIN CALCIUM [Concomitant]

REACTIONS (1)
  - PULMONARY EMBOLISM [None]
